FAERS Safety Report 4364123-8 (Version None)
Quarter: 2004Q2

REPORT INFORMATION
  Report Type: 
  Country: None (occurrence: None)
  Receive Date: 20040519
  Receipt Date: 20040504
  Transmission Date: 20050107
  Serious: Yes (Life-Threatening, Hospitalization)
  Sender: FDA-Public Use
  Company Number: S04-USA-02671-01

PATIENT

DRUGS (1)
  1. TIAZAC [Suspect]

REACTIONS (2)
  - BRADYCARDIA [None]
  - MEDICATION ERROR [None]
